FAERS Safety Report 24538599 (Version 3)
Quarter: 2025Q4

REPORT INFORMATION
  Report Type: Spontaneous
  Country: US (occurrence: US)
  Receive Date: 20241023
  Receipt Date: 20251029
  Transmission Date: 20260118
  Serious: No
  Sender: BIOGEN
  Company Number: US-BIOGEN-2024BI01271518

PATIENT
  Age: 46 Year
  Sex: Female

DRUGS (2)
  1. TYSABRI [Suspect]
     Active Substance: NATALIZUMAB
     Indication: Multiple sclerosis
  2. TYSABRI [Suspect]
     Active Substance: NATALIZUMAB
     Route: 065

REACTIONS (9)
  - Multiple sclerosis [Not Recovered/Not Resolved]
  - Fatigue [Unknown]
  - Pain [Unknown]
  - Temperature intolerance [Unknown]
  - Therapeutic response shortened [Unknown]
  - Aphasia [Unknown]
  - Dysphonia [Unknown]
  - Memory impairment [Not Recovered/Not Resolved]
  - Vertigo [Unknown]

NARRATIVE: CASE EVENT DATE: 20240627
